FAERS Safety Report 6308263-2 (Version None)
Quarter: 2009Q3

REPORT INFORMATION
  Report Type: 
  Country: None (occurrence: None)
  Receive Date: 20090813
  Receipt Date: 20090804
  Transmission Date: 20100115
  Serious: Yes (Hospitalization)
  Sender: FDA-Public Use
  Company Number: NZ-NOVOPROD-290098

PATIENT
  Age: 60 Year
  Sex: Male

DRUGS (1)
  1. PENMIX 30 PENFILL [Suspect]
     Indication: TYPE 2 DIABETES MELLITUS

REACTIONS (1)
  - PNEUMONIA [None]
